FAERS Safety Report 9387751 (Version 1)
Quarter: 2013Q3

REPORT INFORMATION
  Report Type: Spontaneous
  Country: US (occurrence: US)
  Receive Date: 20130708
  Receipt Date: 20130708
  Transmission Date: 20140515
  Serious: No
  Sender: FDA-Public Use
  Company Number: US-ASTRAZENECA-2013SE42897

PATIENT
  Age: 77 Year
  Sex: Female

DRUGS (8)
  1. SYMBICORT [Suspect]
     Dosage: 320MCG BID
     Route: 055
  2. METOPROLOL [Suspect]
     Route: 065
  3. SINGULAIR [Concomitant]
     Route: 065
  4. SPIRIVA [Concomitant]
     Route: 065
  5. ASA [Concomitant]
     Route: 065
  6. RECLAST [Concomitant]
     Route: 065
  7. VIT D3 [Concomitant]
     Route: 065
  8. METFORMIN [Concomitant]
     Route: 065

REACTIONS (2)
  - Herpes ophthalmic [Unknown]
  - Contusion [Unknown]
